FAERS Safety Report 7269774-9 (Version None)
Quarter: 2011Q1

REPORT INFORMATION
  Report Type: 
  Country: None (occurrence: None)
  Receive Date: 20110124
  Receipt Date: 20110112
  Transmission Date: 20110831
  Serious: Yes (Hospitalization)
  Sender: FDA-Public Use
  Company Number: OMPQ-NO-1012S-1087

PATIENT
  Age: 71 Year
  Sex: Male
  Weight: 59 kg

DRUGS (4)
  1. SEISHOKU [Concomitant]
  2. OMNIPAQUE 70 [Suspect]
     Indication: METASTASES TO LYMPH NODES
     Dosage: 100 ML, SINGLE DOSE, I.V.
     Route: 042
     Dates: start: 20101224, end: 20101224
  3. SOLU-CORTEF [Concomitant]
  4. GLUCOSE, SODIUM CHLORIDE (SOLACET) [Concomitant]

REACTIONS (4)
  - BLOOD PRESSURE DECREASED [None]
  - INFUSION RELATED REACTION [None]
  - HEADACHE [None]
  - LOSS OF CONSCIOUSNESS [None]
